FAERS Safety Report 7049656-8 (Version None)
Quarter: 2010Q4

REPORT INFORMATION
  Report Type: 
  Country: None (occurrence: None)
  Receive Date: 20101018
  Receipt Date: 20101005
  Transmission Date: 20110411
  Serious: Yes (Disabling)
  Sender: FDA-Public Use
  Company Number: A0885135A

PATIENT
  Age: 55 Year
  Sex: Male

DRUGS (5)
  1. CELSENTRI [Suspect]
     Indication: HIV INFECTION
     Dates: start: 20090707, end: 20091228
  2. FOSAMPRENAVIR [Concomitant]
     Indication: HIV INFECTION
  3. LAMIVUDINE-HIV [Concomitant]
     Indication: HIV INFECTION
  4. TENOFOVIR [Concomitant]
     Indication: HIV INFECTION
  5. RITONAVIR [Concomitant]
     Indication: HIV INFECTION

REACTIONS (9)
  - ARTHRALGIA [None]
  - ASTHENIA [None]
  - CD4 LYMPHOCYTES DECREASED [None]
  - COUGH [None]
  - DECREASED APPETITE [None]
  - GAIT DISTURBANCE [None]
  - MALAISE [None]
  - PAIN IN EXTREMITY [None]
  - VIRAL LOAD INCREASED [None]
